FAERS Safety Report 5587421-9 (Version None)
Quarter: 2007Q4

REPORT INFORMATION
  Report Type: 
  Country: None (occurrence: None)
  Receive Date: 20071207
  Receipt Date: 20061025
  Transmission Date: 20080405
  Serious: Yes (Other)
  Sender: FDA-Public Use
  Company Number: 2004032730

PATIENT
  Age: 60 Year
  Sex: Male
  Weight: 102.0593 kg

DRUGS (13)
  1. VIAGRA [Suspect]
     Indication: ERECTILE DYSFUNCTION
     Dosage: 100 MG (100 MG,AS NECESSARY),ORAL
     Route: 048
     Dates: start: 20010101, end: 20040101
  2. ATENOLOL [Suspect]
     Indication: HYPERTENSION
     Dosage: 50 MG (50 MG,1 IN 1 D),ORAL
     Route: 048
     Dates: start: 20030101
  3. NIFEDIPINE [Suspect]
     Indication: HYPERTENSION
     Dosage: 60 MG (60 MG,1 IN 1 D),ORAL
     Route: 048
     Dates: start: 20030101
  4. LISINOPRIL [Suspect]
     Indication: HYPERTENSION
     Dosage: 20 MG (20 MG,1 IN 1 D),ORAL
     Route: 048
     Dates: start: 20030101
  5. METOPROLOL TARTRATE [Suspect]
     Dosage: ORAL
     Route: 048
  6. HYDRALAZINE HCL [Suspect]
  7. LEVITRA [Suspect]
  8. CIALIS [Suspect]
  9. HYDROCHLOROTHIAZIDE/TRIAMTERENE (HYDROCHLOROTHIAZIDE, TRIAMTERENE) [Suspect]
  10. ANTIHYPERTENSIVES (ANTIHYPERTENSIVES) [Suspect]
     Dosage: ORAL
     Route: 048
  11. ALL OTHER THERAPEUTIC PRODUCTS (ALL OTHER THERAPEUTIC PRODUCTS) [Concomitant]
  12. ZOCOR [Concomitant]
  13. DYAZIDE [Concomitant]

REACTIONS (3)
  - DRUG INEFFECTIVE [None]
  - DRUG INTERACTION [None]
  - HYPERTENSION [None]
